FAERS Safety Report 8477513-9 (Version None)
Quarter: 2012Q2

REPORT INFORMATION
  Report Type: 
  Country: None (occurrence: None)
  Receive Date: 20120629
  Receipt Date: 20120625
  Transmission Date: 20120825
  Serious: Yes (Hospitalization)
  Sender: FDA-Public Use
  Company Number: PHHY2012IT055028

PATIENT
  Sex: Male

DRUGS (2)
  1. IMATINIB MESYLATE [Suspect]
     Indication: CHRONIC MYELOID LEUKAEMIA
     Dosage: 400 MG, UNK
     Route: 048
     Dates: start: 20120216, end: 20120323
  2. IMATINIB MESYLATE [Suspect]
     Dosage: 400 MG, UNK
     Route: 048

REACTIONS (2)
  - LIVER DISORDER [None]
  - GENERALISED OEDEMA [None]
